FAERS Safety Report 15037528 (Version 1)
Quarter: 2018Q2

REPORT INFORMATION
  Report Type: Spontaneous
  Country: US (occurrence: US)
  Receive Date: 20180620
  Receipt Date: 20180620
  Transmission Date: 20180711
  Serious: Yes (Other)
  Sender: FDA-Public Use
  Company Number: US-TEVA-2018-US-906911

PATIENT
  Age: 67 Year
  Sex: Male

DRUGS (4)
  1. LONSURF [Suspect]
     Active Substance: TIPIRACIL HYDROCHLORIDE\TRIFLURIDINE
     Indication: COLON CANCER
     Dosage: 160 MILLIGRAM DAILY;
     Route: 048
     Dates: start: 201709, end: 20180511
  2. ZANTAC [Concomitant]
     Active Substance: RANITIDINE HYDROCHLORIDE
  3. GABAPENTIN. [Suspect]
     Active Substance: GABAPENTIN
     Route: 065
  4. MORPHINE [Concomitant]
     Active Substance: MORPHINE

REACTIONS (3)
  - Memory impairment [Unknown]
  - Drug ineffective [Unknown]
  - Disease progression [Unknown]

NARRATIVE: CASE EVENT DATE: 201805
